FAERS Safety Report 17226834 (Version 6)
Quarter: 2020Q2

REPORT INFORMATION
  Report Type: Report from Study
  Country: US (occurrence: US)
  Receive Date: 20200102
  Receipt Date: 20200525
  Transmission Date: 20200713
  Serious: Yes (Other)
  Sender: FDA-Public Use
  Company Number: US-PFIZER INC-2019536597

PATIENT
  Age: 75 Year
  Sex: Female

DRUGS (1)
  1. IBRANCE [Suspect]
     Active Substance: PALBOCICLIB
     Indication: BREAST CANCER FEMALE
     Dosage: 125 MG, CYCLIC (DAILY DAY 1-21 OF 28 DAY CYCLE)
     Route: 048
     Dates: start: 20191119

REACTIONS (27)
  - Dyspnoea [Unknown]
  - Paraesthesia [Unknown]
  - Hot flush [Unknown]
  - Product dose omission [Unknown]
  - Madarosis [Unknown]
  - Condition aggravated [Unknown]
  - White blood cell count decreased [Unknown]
  - Alopecia [Unknown]
  - Pyrexia [Unknown]
  - Fatigue [Unknown]
  - Skin disorder [Unknown]
  - Epistaxis [Unknown]
  - Appetite disorder [Recovering/Resolving]
  - Rash [Unknown]
  - Spinal compression fracture [Unknown]
  - Disease recurrence [Unknown]
  - Hair growth abnormal [Unknown]
  - Weight decreased [Unknown]
  - Constipation [Not Recovered/Not Resolved]
  - Abdominal discomfort [Unknown]
  - Fall [Unknown]
  - Tumour marker increased [Unknown]
  - Flank pain [Unknown]
  - Anxiety [Unknown]
  - Pain [Unknown]
  - Peripheral coldness [Unknown]
  - Stomatitis [Unknown]

NARRATIVE: CASE EVENT DATE: 2019
